FAERS Safety Report 18122784 (Version 1)
Quarter: 2020Q3

REPORT INFORMATION
  Report Type: Spontaneous
  Country: US (occurrence: US)
  Receive Date: 20200806
  Receipt Date: 20200806
  Transmission Date: 20201103
  Serious: Yes (Other)
  Sender: FDA-Public Use
  Company Number: None

PATIENT
  Age: 61 Year
  Sex: Male
  Weight: 83.25 kg

DRUGS (1)
  1. ANTI?BAC HAND SANITIZER [Suspect]
     Active Substance: ALCOHOL
     Dosage: ?          OTHER STRENGTH:1;QUANTITY:16.9 OUNCE(S);?
     Route: 061
     Dates: end: 20200806

REACTIONS (3)
  - Dizziness [None]
  - Vision blurred [None]
  - Gastric disorder [None]

NARRATIVE: CASE EVENT DATE: 20200730
